FAERS Safety Report 6093008-4 (Version None)
Quarter: 2009Q1

REPORT INFORMATION
  Report Type: 
  Country: None (occurrence: None)
  Receive Date: 20090224
  Receipt Date: 20080820
  Transmission Date: 20090719
  Serious: Yes (Death)
  Sender: FDA-Public Use
  Company Number: 2008-0006

PATIENT
  Sex: Male

DRUGS (1)
  1. PROZAC [Suspect]

REACTIONS (5)
  - COMPLETED SUICIDE [None]
  - EDUCATIONAL PROBLEM [None]
  - INSOMNIA [None]
  - INTENTIONAL SELF-INJURY [None]
  - SKIN LACERATION [None]
